FAERS Safety Report 5235523-9 (Version None)
Quarter: 2007Q1

REPORT INFORMATION
  Report Type: 
  Country: None (occurrence: None)
  Receive Date: 20070212
  Receipt Date: 20070130
  Transmission Date: 20070707
  Serious: Yes (Other)
  Sender: FDA-Public Use
  Company Number: PHFR2007GB00697

PATIENT
  Age: 9 Year
  Sex: Female

DRUGS (1)
  1. RITALIN [Suspect]

REACTIONS (2)
  - LOWER LIMB FRACTURE [None]
  - PRURITUS [None]
